FAERS Safety Report 25411331 (Version 2)
Quarter: 2025Q2

REPORT INFORMATION
  Report Type: Report from Study
  Country: ES (occurrence: ES)
  Receive Date: 20250609
  Receipt Date: 20250612
  Transmission Date: 20250716
  Serious: Yes (Other)
  Sender: RADIUS PHARM
  Company Number: ES-THERAMEX-2025001672

PATIENT
  Age: 68 Year
  Sex: Female

DRUGS (1)
  1. ABALOPARATIDE [Suspect]
     Active Substance: ABALOPARATIDE
     Indication: Osteoporosis
     Dosage: 1 INJECTION/24H
     Route: 058
     Dates: start: 202503, end: 20250530

REACTIONS (9)
  - Syncope [Recovering/Resolving]
  - Loss of consciousness [Recovering/Resolving]
  - Increased tendency to bruise [Recovering/Resolving]
  - Bone pain [Recovering/Resolving]
  - Dizziness [Recovering/Resolving]
  - Malaise [Recovering/Resolving]
  - Nausea [Recovering/Resolving]
  - Constipation [Recovering/Resolving]
  - Headache [Recovering/Resolving]

NARRATIVE: CASE EVENT DATE: 20250522
